FAERS Safety Report 16656623 (Version 1)
Quarter: 2019Q3

REPORT INFORMATION
  Report Type: Spontaneous
  Country: US (occurrence: US)
  Receive Date: 20190731
  Receipt Date: 20190731
  Transmission Date: 20191004
  Serious: No
  Sender: FDA-Public Use
  Company Number: None

PATIENT
  Sex: Female

DRUGS (2)
  1. METOPROLOL. [Suspect]
     Active Substance: METOPROLOL
  2. TRAMADOL. [Suspect]
     Active Substance: TRAMADOL

REACTIONS (3)
  - Product dispensing error [None]
  - Wrong product administered [None]
  - Dizziness [None]
